FAERS Safety Report 8810986 (Version 1)
Quarter: 2012Q4

REPORT INFORMATION
  Report Type: 
  Country: DE (occurrence: DE)
  Receive Date: 20120927
  Receipt Date: 20120927
  Transmission Date: 20130627
  Serious: Yes (Other)
  Sender: FDA-Public Use
  Company Number: DE-RANBAXY-2012RR-59992

PATIENT
  Age: 60 Year
  Sex: Female
  Weight: 66 kg

DRUGS (1)
  1. ATORVASTATIN [Suspect]
     Indication: HYPERLIPIDAEMIA
     Dosage: 10 mg, qod
     Route: 048
     Dates: start: 20120821, end: 20120830

REACTIONS (5)
  - Myalgia [Recovered/Resolved]
  - Cardiac discomfort [Recovered/Resolved]
  - Abasia [Recovered/Resolved]
  - Headache [Recovered/Resolved]
  - Palpitations [Recovered/Resolved]
